FAERS Safety Report 6425967-1 (Version None)
Quarter: 2009Q4

REPORT INFORMATION
  Report Type: 
  Country: None (occurrence: None)
  Receive Date: 20091103
  Receipt Date: 20091103
  Transmission Date: 20100525
  Serious: Yes (Hospitalization)
  Sender: FDA-Public Use
  Company Number: None

PATIENT
  Age: 71 Year
  Sex: Male
  Weight: 67 kg

DRUGS (1)
  1. BORTEZOMIB [Suspect]
     Dosage: 2.4 MG PRN IV
     Route: 042
     Dates: start: 20080421, end: 20080822

REACTIONS (2)
  - AXONAL NEUROPATHY [None]
  - PERIPHERAL SENSORIMOTOR NEUROPATHY [None]
